FAERS Safety Report 6795672-0 (Version None)
Quarter: 2010Q2

REPORT INFORMATION
  Report Type: 
  Country: None (occurrence: None)
  Receive Date: 20100625
  Receipt Date: 20100616
  Transmission Date: 20101027
  Serious: Yes (Hospitalization)
  Sender: FDA-Public Use
  Company Number: JP-ELI_LILLY_AND_COMPANY-JP201006004582

PATIENT
  Age: 87 Year
  Sex: Male

DRUGS (1)
  1. GEMZAR [Suspect]
     Indication: LUNG ADENOCARCINOMA STAGE III
     Dosage: 1000 MG, OTHER
     Route: 042
     Dates: end: 20090101

REACTIONS (5)
  - CEREBRAL INFARCTION [None]
  - COUGH [None]
  - KLEBSIELLA INFECTION [None]
  - MENINGITIS [None]
  - SEPTIC SHOCK [None]
